FAERS Safety Report 5737944-4 (Version None)
Quarter: 2008Q2

REPORT INFORMATION
  Report Type: 
  Country: None (occurrence: None)
  Receive Date: 20080512
  Receipt Date: 20080512
  Transmission Date: 20081010
  Serious: Yes (Hospitalization)
  Sender: FDA-Public Use
  Company Number: None

PATIENT
  Age: 61 Year
  Sex: Male

DRUGS (1)
  1. WARFARIN SODIUM [Suspect]
     Indication: CARDIAC OPERATION
     Dosage: 5 MG EVERY DAY PO
     Route: 048
     Dates: start: 19920115

REACTIONS (2)
  - HAEMORRHAGE [None]
  - INCORRECT DOSE ADMINISTERED [None]
